FAERS Safety Report 12623565 (Version 9)
Quarter: 2019Q4

REPORT INFORMATION
  Report Type: Spontaneous
  Country: US (occurrence: US)
  Receive Date: 20160804
  Receipt Date: 20191106
  Transmission Date: 20200122
  Serious: Yes (Other)
  Sender: FDA-Public Use
  Company Number: US-ACTELION-A-US2016-140281

PATIENT
  Age: 46 Year
  Sex: Female

DRUGS (26)
  1. ADCIRCA [Suspect]
     Active Substance: TADALAFIL
     Dosage: 20 MG, QD
     Route: 065
  2. METOLAZONE. [Suspect]
     Active Substance: METOLAZONE
     Indication: PRODUCT USED FOR UNKNOWN INDICATION
     Dosage: 2.5 UNK
     Route: 065
  3. DIGOXIN. [Concomitant]
     Active Substance: DIGOXIN
     Dosage: 0.125 MG, QD
  4. ZOLPIDEM [Concomitant]
     Active Substance: ZOLPIDEM TARTRATE
     Indication: INSOMNIA
     Dosage: 10 MG AT BEDTIME AS NEEDED
  5. TRACLEER [Suspect]
     Active Substance: BOSENTAN
     Indication: PULMONARY ARTERIAL HYPERTENSION
     Dosage: 125 MG, BID
     Route: 048
     Dates: start: 2002
  6. UPTRAVI [Suspect]
     Active Substance: SELEXIPAG
     Dosage: 600 MCG, BID
     Route: 048
  7. UPTRAVI [Suspect]
     Active Substance: SELEXIPAG
     Dosage: 200 MCG, BID
     Route: 048
  8. ZOFRAN [Suspect]
     Active Substance: ONDANSETRON HYDROCHLORIDE
     Dosage: UNK
     Route: 065
  9. HCTZ [Concomitant]
     Active Substance: HYDROCHLOROTHIAZIDE
     Dosage: 12.5  MG/D
  10. HCTZ [Concomitant]
     Active Substance: HYDROCHLOROTHIAZIDE
     Dosage: 25  EVERY OTHER DAY
  11. OMEPRAZOLE. [Concomitant]
     Active Substance: OMEPRAZOLE
     Dosage: 20 MG, QD
  12. ADCIRCA [Suspect]
     Active Substance: TADALAFIL
     Indication: PULMONARY ARTERIAL HYPERTENSION
     Dosage: 40 MG, QD
     Route: 065
     Dates: start: 201609
  13. AMBRISENTAN [Concomitant]
     Active Substance: AMBRISENTAN
     Dosage: UNK, QD
  14. UPTRAVI [Suspect]
     Active Substance: SELEXIPAG
     Indication: PULMONARY ARTERIAL HYPERTENSION
     Dosage: 1400 MCG, BID
     Route: 048
     Dates: end: 201804
  15. METHYLPHENIDATE. [Concomitant]
     Active Substance: METHYLPHENIDATE
     Dosage: 20 MG EACH MORNING AND 1 TABLET IN THE AFTERNOON
  16. ADDERALL [Concomitant]
     Active Substance: AMPHETAMINE ASPARTATE\AMPHETAMINE SULFATE\DEXTROAMPHETAMINE SACCHARATE\DEXTROAMPHETAMINE SULFATE
  17. UPTRAVI [Suspect]
     Active Substance: SELEXIPAG
     Dosage: 800 MCG, BID
     Route: 048
  18. WARFARIN [Suspect]
     Active Substance: WARFARIN
     Indication: PRODUCT USED FOR UNKNOWN INDICATION
     Route: 065
  19. FAMOTIDINE. [Concomitant]
     Active Substance: FAMOTIDINE
     Dosage: 20 MG
  20. UPTRAVI [Suspect]
     Active Substance: SELEXIPAG
     Dosage: 600 MCG, BID
     Route: 048
  21. SILDENAFIL. [Suspect]
     Active Substance: SILDENAFIL
     Indication: PRODUCT USED FOR UNKNOWN INDICATION
     Dosage: 20 MG, TID
     Route: 065
  22. ZOFRAN [Suspect]
     Active Substance: ONDANSETRON HYDROCHLORIDE
     Indication: NAUSEA
     Dosage: 4 MG, BID
     Route: 065
  23. UPTRAVI [Suspect]
     Active Substance: SELEXIPAG
     Dosage: 1200 MCG, BID
     Route: 048
  24. POTASSIUM [Concomitant]
     Active Substance: POTASSIUM
  25. TRIAMCINOLONE ACETONIDE. [Concomitant]
     Active Substance: TRIAMCINOLONE ACETONIDE
  26. PAROXETINE. [Concomitant]
     Active Substance: PAROXETINE
     Dosage: 5 MG

REACTIONS (46)
  - Abdominal pain upper [Unknown]
  - Exercise tolerance decreased [Recovering/Resolving]
  - Oedema peripheral [Unknown]
  - Abdominal distension [Unknown]
  - Brain natriuretic peptide increased [Unknown]
  - Fluid overload [Unknown]
  - Transplant evaluation [Unknown]
  - Ventricular dysfunction [Unknown]
  - Sleep apnoea syndrome [Unknown]
  - Right ventricular dilatation [Unknown]
  - Psoriasis [Unknown]
  - Erythema [Unknown]
  - Weight decreased [Unknown]
  - Nausea [Unknown]
  - Pulmonary arterial hypertension [Unknown]
  - Blood creatinine increased [Unknown]
  - Feeling abnormal [Unknown]
  - Tricuspid valve incompetence [Unknown]
  - Flushing [Recovering/Resolving]
  - Dizziness [Unknown]
  - Gastrointestinal haemorrhage [Unknown]
  - Dyspnoea exertional [Unknown]
  - Benign ovarian tumour [Unknown]
  - Syncope [Unknown]
  - Gout [Unknown]
  - Palpitations [Recovered/Resolved]
  - Oxygen saturation decreased [Unknown]
  - Nasal dryness [Unknown]
  - Insomnia [Unknown]
  - Cardiac hypertrophy [Unknown]
  - Deafness neurosensory [Not Recovered/Not Resolved]
  - Deafness [Not Recovered/Not Resolved]
  - Fluid retention [Unknown]
  - Mass excision [Unknown]
  - Dyspnoea [Recovering/Resolving]
  - Oedema [Unknown]
  - Myalgia [Not Recovered/Not Resolved]
  - Loss of consciousness [Unknown]
  - Malaise [Unknown]
  - Hot flush [Unknown]
  - Glycosylated haemoglobin increased [Unknown]
  - Pain in extremity [Unknown]
  - Headache [Recovering/Resolving]
  - Product dose omission [Unknown]
  - Right ventricular systolic pressure increased [Unknown]
  - Diabetes mellitus [Unknown]

NARRATIVE: CASE EVENT DATE: 2011
